FAERS Safety Report 9031587 (Version 2)
Quarter: 2013Q1

REPORT INFORMATION
  Report Type: Report from Study
  Country: JP (occurrence: JP)
  Receive Date: 20130124
  Receipt Date: 20130306
  Transmission Date: 20140127
  Serious: Yes (Death, Hospitalization)
  Sender: FDA-Public Use
  Company Number: JP-ROCHE-1182674

PATIENT
  Age: 81 Year
  Sex: Female

DRUGS (7)
  1. METHOXY POLYETHYLENE GLYCOL-EPOETIN BETA [Suspect]
     Indication: NEPHROGENIC ANAEMIA
     Route: 042
     Dates: start: 20120524, end: 20121218
  2. FESIN [Concomitant]
     Route: 042
     Dates: start: 20120315, end: 20120517
  3. FESIN [Concomitant]
     Route: 042
     Dates: start: 20120816, end: 20121108
  4. HEPARIN SODIUM [Concomitant]
     Dosage: IT IS DIALYZING IT.
     Route: 042
     Dates: end: 20130112
  5. RISUMIC [Concomitant]
     Dosage: DURING THE SECOND HOUR OF THE DIALYSIS BEGINNING
     Route: 048
     Dates: start: 20120809, end: 20121124
  6. CINACALCET HYDROCHLORIDE [Concomitant]
     Dosage: AFTER EVERY DIALYSIS
     Route: 048
     Dates: start: 20120913, end: 20130112
  7. NEXIUM [Concomitant]
     Dosage: AFTER EVERY DIALYSIS
     Route: 048
     Dates: start: 20120913, end: 20130112

REACTIONS (3)
  - Fall [Fatal]
  - Tibia fracture [Fatal]
  - Procedural haemorrhage [Fatal]
